FAERS Safety Report 5573150-4 (Version None)
Quarter: 2007Q4

REPORT INFORMATION
  Report Type: 
  Country: None (occurrence: None)
  Receive Date: 20071220
  Receipt Date: 20071211
  Transmission Date: 20080405
  Serious: No
  Sender: FDA-Public Use
  Company Number: 2007-05668

PATIENT
  Age: 53 Year
  Sex: Male

DRUGS (9)
  1. FIORICET [Suspect]
     Indication: ANALGESIA
  2. GENTAMICIN SULFATE [Suspect]
     Indication: SEPSIS
  3. METRONIDAZOLE [Suspect]
     Indication: SEPSIS
  4. AUGMENTIN '125' [Suspect]
     Indication: SEPSIS
  5. LEVOFLOXACIN [Suspect]
     Indication: SEPSIS
  6. VANCOMYCIN [Suspect]
     Indication: SEPSIS
  7. DICLOFENAC (DICLOFENAC) [Concomitant]
  8. OMEPRAZOLE SODIUM (OMEPRAZOLE SODIUM) [Concomitant]
  9. METOCLOPRAMIDE [Concomitant]

REACTIONS (3)
  - METABOLIC ACIDOSIS [None]
  - MYOCARDIAL INFARCTION [None]
  - PYROGLUTAMATE INCREASED [None]
